FAERS Safety Report 13103268 (Version 1)
Quarter: 2017Q1

REPORT INFORMATION
  Report Type: Spontaneous
  Country: US (occurrence: US)
  Receive Date: 20170110
  Receipt Date: 20170110
  Transmission Date: 20170428
  Serious: No
  Sender: FDA-Public Use
  Company Number: US-CELGENEUS-USA-2017011779

PATIENT
  Age: 41 Year
  Sex: Female

DRUGS (1)
  1. OTEZLA [Suspect]
     Active Substance: APREMILAST
     Indication: PRODUCT USED FOR UNKNOWN INDICATION
     Dosage: 60 MILLIGRAM
     Route: 048
     Dates: start: 20161111, end: 20161125

REACTIONS (5)
  - Dizziness [Unknown]
  - Abdominal discomfort [Unknown]
  - Tremor [Unknown]
  - Multiple allergies [Unknown]
  - Nausea [Unknown]

NARRATIVE: CASE EVENT DATE: 20161111
